FAERS Safety Report 10910661 (Version 1)
Quarter: 2015Q1

REPORT INFORMATION
  Report Type: Spontaneous
  Country: GB (occurrence: GB)
  Receive Date: 20150312
  Receipt Date: 20150312
  Transmission Date: 20150721
  Serious: Yes (Disabling)
  Sender: FDA-Public Use
  Company Number: GB-PFIZER INC-2015082455

PATIENT
  Age: 38 Year
  Sex: Female
  Weight: 52 kg

DRUGS (7)
  1. THIAMINE [Concomitant]
     Active Substance: THIAMINE
     Dosage: 1 DF, 2X/DAY
     Dates: start: 20130806, end: 20150206
  2. ADCAL [Concomitant]
     Dosage: 1 DF, 2X/DAY
     Dates: start: 20141003, end: 20150206
  3. PREGABALIN. [Suspect]
     Active Substance: PREGABALIN
     Dosage: 1 DF, 2X/DAY
     Dates: start: 20150105
  4. SERTRALINE [Concomitant]
     Active Substance: SERTRALINE HYDROCHLORIDE
     Dosage: 1 DF, DAILY
     Dates: start: 20140929, end: 20150206
  5. VITAMIN B COMPLEX [Concomitant]
     Active Substance: CYANOCOBALAMIN\DEXPANTHENOL\NIACINAMIDE\PYRIDOXINE HYDROCHLORIDE\RIBOFLAVIN 5^-PHOSPHATE SODIUM\THIAMINE HYDROCHLORIDE\VITAMIN B COMPLEX
     Dosage: 2 DF, 1X/DAY
     Dates: start: 20120924, end: 20150206
  6. LANSOPRAZOLE. [Concomitant]
     Active Substance: LANSOPRAZOLE
     Dosage: 1 DF, DAILY
     Dates: start: 20141003, end: 20150206
  7. THIAMINE [Concomitant]
     Active Substance: THIAMINE
     Dosage: 1 DF, 3X/DAY
     Dates: start: 20141003, end: 20150206

REACTIONS (2)
  - Dysphemia [Recovered/Resolved]
  - Dyskinesia [Recovered/Resolved]

NARRATIVE: CASE EVENT DATE: 20150112
